APPROVED DRUG PRODUCT: RANITIDINE HYDROCHLORIDE
Active Ingredient: RANITIDINE HYDROCHLORIDE
Strength: EQ 150MG BASE
Dosage Form/Route: CAPSULE;ORAL
Application: A211893 | Product #001
Applicant: APPCO PHARMA LLC
Approved: Apr 5, 2019 | RLD: No | RS: No | Type: DISCN